FAERS Safety Report 18509828 (Version 1)
Quarter: 2020Q4

REPORT INFORMATION
  Report Type: Spontaneous
  Country: BR (occurrence: BR)
  Receive Date: 20201117
  Receipt Date: 20201117
  Transmission Date: 20210114
  Serious: Yes (Death, Life-Threatening, Hospitalization, Other)
  Sender: FDA-Public Use
  Company Number: BR-ACCORD-207956

PATIENT
  Age: 3 Year
  Sex: Female

DRUGS (10)
  1. CEFUROXIME. [Concomitant]
     Active Substance: CEFUROXIME
  2. FILGRASTIM [Suspect]
     Active Substance: FILGRASTIM
     Indication: ACUTE MONOCYTIC LEUKAEMIA
     Dates: start: 2014
  3. CEFEPIME [Concomitant]
     Active Substance: CEFEPIME HYDROCHLORIDE
  4. CYTARABINE/CYTARABINE HYDROCHLORIDE/CYTARABINE OCFOSFATE [Suspect]
     Active Substance: CYTARABINE
     Indication: ACUTE MONOCYTIC LEUKAEMIA
     Dosage: 3 G/M2 MAINTENANCE CYCLE, 1 G/M2, 0.5 G/M2
     Dates: start: 2014
  5. MERCAPTOPURINE/MERCAPTOPURINE ANHYDROUS [Suspect]
     Active Substance: MERCAPTOPURINE
     Indication: ACUTE MONOCYTIC LEUKAEMIA
     Dosage: 2 CYCLICAL
     Dates: start: 2014
  6. FLUDARABINE [Suspect]
     Active Substance: FLUDARABINE PHOSPHATE
     Indication: ACUTE MONOCYTIC LEUKAEMIA
     Dates: start: 201401
  7. VANCOMYCIN [Concomitant]
     Active Substance: VANCOMYCIN
  8. MITOXANTRONE [Suspect]
     Active Substance: MITOXANTRONE HYDROCHLORIDE
     Indication: ACUTE MONOCYTIC LEUKAEMIA
     Dates: start: 2014
  9. IDARUBICIN [Suspect]
     Active Substance: IDARUBICIN
     Indication: ACUTE MONOCYTIC LEUKAEMIA
     Dates: start: 2014
  10. ETOPOSIDE. [Suspect]
     Active Substance: ETOPOSIDE
     Indication: ACUTE MONOCYTIC LEUKAEMIA
     Dates: start: 2014

REACTIONS (4)
  - Haemophagocytic lymphohistiocytosis [Not Recovered/Not Resolved]
  - Febrile neutropenia [Unknown]
  - Pancytopenia [Unknown]
  - Splenomegaly [Unknown]

NARRATIVE: CASE EVENT DATE: 2014
